FAERS Safety Report 5051336-5 (Version None)
Quarter: 2006Q3

REPORT INFORMATION
  Report Type: 
  Country: None (occurrence: None)
  Receive Date: 20060714
  Receipt Date: 20060703
  Transmission Date: 20061208
  Serious: Yes (Disabling)
  Sender: FDA-Public Use
  Company Number: GB-GILEAD-2006-0009842

PATIENT
  Sex: Male

DRUGS (1)
  1. HEPSERA [Suspect]

REACTIONS (1)
  - CATARACT [None]
